FAERS Safety Report 9296629 (Version 1)
Quarter: 2013Q2

REPORT INFORMATION
  Report Type: Spontaneous
  Country: US (occurrence: None)
  Receive Date: 20130515
  Receipt Date: 20130515
  Transmission Date: 20140414
  Serious: Yes (Other)
  Sender: FDA-Public Use
  Company Number: 001528377A

PATIENT
  Age: 64 Year
  Sex: Female

DRUGS (1)
  1. MEANINGFUL BEAUTY ANTIOXIDANT DAY CREME SPF 20 [Suspect]
     Indication: SKIN DISORDER
     Route: 061
     Dates: start: 20130105, end: 20130419

REACTIONS (2)
  - Swelling face [None]
  - Pharyngeal oedema [None]
